FAERS Safety Report 7461348-X (Version None)
Quarter: 2011Q2

REPORT INFORMATION
  Report Type: 
  Country: None (occurrence: None)
  Receive Date: 20110506
  Receipt Date: 20071207
  Transmission Date: 20111010
  Serious: No
  Sender: FDA-Public Use
  Company Number: 2007BI026048

PATIENT
  Sex: Female

DRUGS (13)
  1. ASPIRIN [Concomitant]
     Indication: PRODUCT USED FOR UNKNOWN INDICATION
  2. CYMBALTA [Concomitant]
     Indication: DEPRESSION
  3. GABAPENTIN [Concomitant]
     Indication: PRODUCT USED FOR UNKNOWN INDICATION
  4. RISPERDAL [Concomitant]
     Indication: PRODUCT USED FOR UNKNOWN INDICATION
  5. TYSABRI [Suspect]
     Indication: MULTIPLE SCLEROSIS
     Route: 042
     Dates: start: 20071002, end: 20071031
  6. AVONEX [Concomitant]
     Indication: MULTIPLE SCLEROSIS
     Route: 030
  7. BACLOFEN [Concomitant]
     Indication: PRODUCT USED FOR UNKNOWN INDICATION
  8. HYDROCHLOROTHIAZIDE [Concomitant]
     Indication: PRODUCT USED FOR UNKNOWN INDICATION
  9. FLOMAX [Concomitant]
     Indication: PRODUCT USED FOR UNKNOWN INDICATION
  10. TYSABRI [Suspect]
     Route: 042
     Dates: start: 20080523, end: 20090410
  11. INSULIN [Concomitant]
     Indication: DIABETES MELLITUS
  12. SYNTHROID [Concomitant]
     Indication: HYPOTHYROIDISM
  13. TRIAMTERENE [Concomitant]
     Indication: PRODUCT USED FOR UNKNOWN INDICATION

REACTIONS (10)
  - DEVICE RELATED INFECTION [None]
  - FALL [None]
  - MUSCLE ATROPHY [None]
  - CONTUSION [None]
  - DIABETES MELLITUS [None]
  - PERONEAL NERVE PALSY [None]
  - MULTIPLE SCLEROSIS [None]
  - INFUSION RELATED REACTION [None]
  - HYPERSENSITIVITY [None]
  - BLOOD GLUCOSE DECREASED [None]
